FAERS Safety Report 15688904 (Version 2)
Quarter: 2019Q2

REPORT INFORMATION
  Report Type: Report from Study
  Country: US (occurrence: US)
  Receive Date: 20181205
  Receipt Date: 20190627
  Transmission Date: 20190711
  Serious: Yes (Hospitalization, Other)
  Sender: FDA-Public Use
  Company Number: US-ARIAD PHARMACEUTICALS, INC-2017US008743

PATIENT
  Age: 33 Year
  Sex: Female

DRUGS (2)
  1. PONATINIB [Suspect]
     Active Substance: PONATINIB
     Indication: ACUTE LYMPHOCYTIC LEUKAEMIA
     Dosage: 15 MILLIGRAM, QD
     Route: 048
     Dates: start: 201505
  2. PONATINIB [Suspect]
     Active Substance: PONATINIB
     Dosage: 15 MILLIGRAM, QD
     Route: 048
     Dates: start: 201610

REACTIONS (30)
  - Viral infection [Unknown]
  - Labile hypertension [Recovered/Resolved]
  - Weight increased [Not Recovered/Not Resolved]
  - Abdominal distension [Unknown]
  - Lichenification [Unknown]
  - Skin wrinkling [Unknown]
  - Product dose omission [Unknown]
  - Cytopenia [Unknown]
  - Chronic graft versus host disease in skin [Unknown]
  - Skin disorder [Unknown]
  - Alopecia [Not Recovered/Not Resolved]
  - Graft versus host disease in gastrointestinal tract [Recovered/Resolved]
  - Diarrhoea [Recovered/Resolved]
  - Rash erythematous [Unknown]
  - Dry skin [Unknown]
  - Stem cell transplant [Unknown]
  - Menopausal symptoms [Unknown]
  - Periorbital cellulitis [Not Recovered/Not Resolved]
  - Upper respiratory tract infection [Unknown]
  - Headache [Recovered/Resolved]
  - Gastric ulcer [Not Recovered/Not Resolved]
  - Cushingoid [Unknown]
  - Fluid retention [Not Recovered/Not Resolved]
  - Pyrexia [Unknown]
  - Osteoporosis [Unknown]
  - Frustration tolerance decreased [Unknown]
  - Depressed mood [Unknown]
  - Keratosis pilaris [Unknown]
  - Arthralgia [Unknown]
  - Back pain [Unknown]

NARRATIVE: CASE EVENT DATE: 20150826
